FAERS Safety Report 8118496-0 (Version None)
Quarter: 2012Q1

REPORT INFORMATION
  Report Type: 
  Country: None (occurrence: None)
  Receive Date: 20120207
  Receipt Date: 20120131
  Transmission Date: 20120608
  Serious: Yes (Hospitalization, Other)
  Sender: FDA-Public Use
  Company Number: US-PFIZER INC-2012001631

PATIENT
  Sex: Female

DRUGS (1)
  1. RAMIPRIL [Suspect]
     Dosage: UNK

REACTIONS (3)
  - DRUG INEFFECTIVE [None]
  - HEART RATE INCREASED [None]
  - BLOOD PRESSURE INCREASED [None]
